FAERS Safety Report 4420011-X (Version None)
Quarter: 2004Q3

REPORT INFORMATION
  Report Type: 
  Country: None (occurrence: None)
  Receive Date: 20040804
  Receipt Date: 20040723
  Transmission Date: 20050211
  Serious: Yes (Hospitalization)
  Sender: FDA-Public Use
  Company Number: CERZ-10623

PATIENT
  Age: 28 Year
  Sex: Male
  Weight: 60 kg

DRUGS (1)
  1. CEREZYME [Suspect]
     Indication: GAUCHER'S DISEASE
     Dosage: 7200 UNITS Q2WKS IV
     Route: 042
     Dates: start: 19980313

REACTIONS (2)
  - CATARACT OPERATION [None]
  - TREATMENT NONCOMPLIANCE [None]
